FAERS Safety Report 7428012-4 (Version None)
Quarter: 2011Q2

REPORT INFORMATION
  Report Type: 
  Country: None (occurrence: None)
  Receive Date: 20110418
  Receipt Date: 20110418
  Transmission Date: 20111010
  Serious: Yes (Other)
  Sender: FDA-Public Use
  Company Number: None

PATIENT
  Age: 48 Year
  Sex: Female
  Weight: 72.5755 kg

DRUGS (2)
  1. WELLBUTRIN [Concomitant]
  2. BUPROPRION HCL [Suspect]
     Indication: DEPRESSION
     Dosage: 150MG 1X/DAY PO
     Route: 048
     Dates: start: 20110411, end: 20110415

REACTIONS (4)
  - TREMOR [None]
  - HOSTILITY [None]
  - AGITATION [None]
  - ANGER [None]
